FAERS Safety Report 22129549 (Version 1)
Quarter: 2023Q1

REPORT INFORMATION
  Report Type: Spontaneous
  Country: CA (occurrence: CA)
  Receive Date: 20230323
  Receipt Date: 20230323
  Transmission Date: 20230418
  Serious: Yes (Hospitalization, Other)
  Sender: FDA-Public Use
  Company Number: CA-GLAXOSMITHKLINE-CA2023AMR041792

PATIENT

DRUGS (1)
  1. LAMOTRIGINE [Suspect]
     Active Substance: LAMOTRIGINE
     Indication: Drug therapy
     Dosage: UNK

REACTIONS (2)
  - Drug reaction with eosinophilia and systemic symptoms [Recovered/Resolved]
  - Status epilepticus [Recovered/Resolved]
